FAERS Safety Report 18279582 (Version 3)
Quarter: 2020Q4

REPORT INFORMATION
  Report Type: Spontaneous
  Country: US (occurrence: US)
  Receive Date: 20200917
  Receipt Date: 20201016
  Transmission Date: 20210113
  Serious: Yes (Hospitalization, Other)
  Sender: FDA-Public Use
  Company Number: US-UNITED THERAPEUTICS-UNT-2020-013588

PATIENT
  Sex: Female

DRUGS (2)
  1. ALYQ [Concomitant]
     Active Substance: TADALAFIL
     Indication: PRODUCT USED FOR UNKNOWN INDICATION
     Dosage: UNK
     Route: 065
  2. REMODULIN [Suspect]
     Active Substance: TREPROSTINIL
     Indication: PRODUCT USED FOR UNKNOWN INDICATION
     Dosage: UNK, CONTINUING
     Route: 058
     Dates: end: 20200620

REACTIONS (4)
  - Renal disorder [Not Recovered/Not Resolved]
  - Fall [Recovered/Resolved with Sequelae]
  - Liver disorder [Not Recovered/Not Resolved]
  - Cerebral haemorrhage [Recovered/Resolved]
